FAERS Safety Report 17367052 (Version 3)
Quarter: 2020Q1

REPORT INFORMATION
  Report Type: Report from Study
  Country: None (occurrence: US)
  Receive Date: 20200204
  Receipt Date: 20200220
  Transmission Date: 20200409
  Serious: Yes (Other)
  Sender: FDA-Public Use
  Company Number: US-ABBVIE-20K-163-3262239-00

PATIENT
  Sex: Male

DRUGS (2)
  1. HUMIRA [Suspect]
     Active Substance: ADALIMUMAB
     Route: 058
     Dates: start: 202002
  2. HUMIRA [Suspect]
     Active Substance: ADALIMUMAB
     Indication: CROHN^S DISEASE
     Route: 058
     Dates: start: 20191001, end: 202001

REACTIONS (8)
  - Dry skin [Unknown]
  - Renal cell carcinoma [Recovering/Resolving]
  - Neck pain [Unknown]
  - Musculoskeletal discomfort [Not Recovered/Not Resolved]
  - Intestinal stenosis [Unknown]
  - Skin irritation [Unknown]
  - Skin exfoliation [Unknown]
  - Diarrhoea [Unknown]

NARRATIVE: CASE EVENT DATE: 2019
